FAERS Safety Report 5275284-0 (Version None)
Quarter: 2007Q1

REPORT INFORMATION
  Report Type: 
  Country: None (occurrence: None)
  Receive Date: 20070322
  Receipt Date: 20070322
  Transmission Date: 20070707
  Serious: Yes (Hospitalization)
  Sender: FDA-Public Use
  Company Number: None

PATIENT
  Age: 72 Year
  Sex: Male
  Weight: 92.5338 kg

DRUGS (17)
  1. SYMLIN [Suspect]
     Indication: DIABETES MELLITUS NON-INSULIN-DEPENDENT
     Dosage: 20 UNITS AC SQ
     Route: 058
     Dates: start: 20070320, end: 20070321
  2. ALLOPURINOL [Concomitant]
  3. ASPIRIN [Concomitant]
  4. ATORVASTATIN - NF* [Concomitant]
  5. CLOPIDOGREL [Concomitant]
  6. DOCUSATE SODIUM [Concomitant]
  7. ENOXAPARIN SODIUM [Concomitant]
  8. INSULIN GLARGINE, HUM. [Concomitant]
  9. INSULIN NOVOLOG [Concomitant]
  10. LEVOTHYROXINE SODIUM [Concomitant]
  11. PANTOPRAZOLE SODIUM [Concomitant]
  12. POLYETHYLENE GLYCOL [Concomitant]
  13. POTASSIUM CHLORIDE [Concomitant]
  14. SENNA [Concomitant]
  15. TAMSULOSIN HCL [Concomitant]
  16. DEXTROSE [Concomitant]
  17. GLUCAGON [Concomitant]

REACTIONS (3)
  - DRUG DISPENSING ERROR [None]
  - INCORRECT DOSE ADMINISTERED [None]
  - MEDICATION ERROR [None]
